FAERS Safety Report 18626423 (Version 3)
Quarter: 2021Q2

REPORT INFORMATION
  Report Type: Report from Study
  Country: None (occurrence: US)
  Receive Date: 20201216
  Receipt Date: 20210421
  Transmission Date: 20210717
  Serious: Yes (Hospitalization, Other)
  Sender: FDA-Public Use
  Company Number: US-ABBVIE-20K-163-3691996-00

PATIENT
  Age: 48 Year
  Sex: Female

DRUGS (3)
  1. COVID?19 VACCINE NOS. [Concomitant]
     Active Substance: COVID-19 VACCINE NOS
     Indication: COVID-19 IMMUNISATION
     Route: 030
     Dates: start: 2021, end: 2021
  2. HUMIRA [Suspect]
     Active Substance: ADALIMUMAB
     Dosage: CITRATE FREE
     Route: 058
     Dates: start: 20201203, end: 20210211
  3. HUMIRA [Suspect]
     Active Substance: ADALIMUMAB
     Indication: RHEUMATOID ARTHRITIS
     Dosage: CITRATE FREE
     Route: 058
     Dates: start: 20201007, end: 2020

REACTIONS (9)
  - Urinary retention postoperative [Unknown]
  - Diverticulitis [Recovered/Resolved]
  - Loss of personal independence in daily activities [Recovering/Resolving]
  - Anxiety [Not Recovered/Not Resolved]
  - Depression [Unknown]
  - Rheumatoid arthritis [Recovered/Resolved]
  - Pain [Recovering/Resolving]
  - Gait disturbance [Recovering/Resolving]
  - Adjustment disorder with depressed mood [Not Recovered/Not Resolved]

NARRATIVE: CASE EVENT DATE: 2020
